FAERS Safety Report 7319010-X (Version None)
Quarter: 2011Q1

REPORT INFORMATION
  Report Type: 
  Country: None (occurrence: None)
  Receive Date: 20110228
  Receipt Date: 20110216
  Transmission Date: 20110831
  Serious: Yes (Hospitalization)
  Sender: FDA-Public Use
  Company Number: US-JNJFOC-20110107439

PATIENT
  Sex: Female
  Weight: 81.65 kg

DRUGS (13)
  1. NITROFURANTOIN [Concomitant]
     Indication: URINARY TRACT INFECTION
     Route: 048
  2. VERAPAMIL [Concomitant]
     Indication: CARDIAC DISORDER
     Route: 048
  3. REMICADE [Suspect]
     Indication: PSORIATIC ARTHROPATHY
     Route: 042
  4. SYNTHROID [Concomitant]
     Indication: HYPOTHYROIDISM
     Route: 048
  5. NEXIUM [Concomitant]
     Indication: GASTROINTESTINAL DISORDER THERAPY
     Route: 048
  6. KLOR-CON [Concomitant]
     Indication: HYPOKALAEMIA
     Route: 048
  7. HYDROCHLOROTHIAZIDE [Concomitant]
     Indication: BLOOD PRESSURE
     Route: 048
  8. METFORMIN [Concomitant]
     Indication: BLOOD GLUCOSE ABNORMAL
     Route: 048
  9. ZOLPIDEM [Concomitant]
     Indication: SLEEP DISORDER
     Route: 048
  10. ATENOLOL [Concomitant]
     Indication: BLOOD PRESSURE
     Route: 048
  11. WARFARIN SODIUM [Concomitant]
     Indication: CARDIOVASCULAR DISORDER
     Route: 048
  12. IMURAN [Concomitant]
     Indication: INFLAMMATION
     Route: 048
  13. ASPIRIN [Concomitant]
     Indication: PRODUCT USED FOR UNKNOWN INDICATION
     Route: 048

REACTIONS (2)
  - DRUG INEFFECTIVE [None]
  - FUNGAL INFECTION [None]
